FAERS Safety Report 9521376 (Version 1)
Quarter: 2013Q3

REPORT INFORMATION
  Report Type: Report from Study
  Country: CA (occurrence: CA)
  Receive Date: 20130913
  Receipt Date: 20130913
  Transmission Date: 20140515
  Serious: Yes (Other)
  Sender: FDA-Public Use
  Company Number: CA-JNJFOC-20130903418

PATIENT
  Age: 58 Year
  Sex: Female
  Weight: 92 kg

DRUGS (4)
  1. REMICADE [Suspect]
     Indication: PSORIASIS
     Route: 042
     Dates: start: 20130611
  2. SYNTHROID [Concomitant]
     Route: 048
  3. DOMPERIDONE MALEATE [Concomitant]
     Route: 065
  4. TECTA [Concomitant]
     Route: 065

REACTIONS (4)
  - Tinnitus [Unknown]
  - Feeling abnormal [Unknown]
  - Swelling face [Recovered/Resolved]
  - Tenderness [Recovered/Resolved]
